FAERS Safety Report 10467031 (Version 1)
Quarter: 2014Q3

REPORT INFORMATION
  Report Type: Spontaneous
  Country: GB (occurrence: GB)
  Receive Date: 20140922
  Receipt Date: 20140922
  Transmission Date: 20150326
  Serious: Yes (Other)
  Sender: FDA-Public Use
  Company Number: GB-TEVA-509359ISR

PATIENT
  Age: 57 Year
  Sex: Female
  Weight: 56.4 kg

DRUGS (11)
  1. AMLODIPINE [Concomitant]
     Active Substance: AMLODIPINE BESYLATE
     Dates: start: 20140811
  2. NITROFURANTOIN. [Concomitant]
     Active Substance: NITROFURANTOIN
     Dates: start: 20140815, end: 20140818
  3. CARMELLOSE [Concomitant]
     Dates: start: 20140617, end: 20140622
  4. SALBUTAMOL [Concomitant]
     Active Substance: ALBUTEROL
     Dates: start: 20140811, end: 20140812
  5. CODEINE PHOSPHATE [Concomitant]
     Active Substance: CODEINE PHOSPHATE
     Dates: start: 20140826
  6. FLUCONAZOLE. [Suspect]
     Active Substance: FLUCONAZOLE
     Dates: start: 20140821
  7. CLOTRIMAZOLE. [Concomitant]
     Active Substance: CLOTRIMAZOLE
     Dates: start: 20140815
  8. LACTULOSE. [Concomitant]
     Active Substance: LACTULOSE
     Dates: start: 20140811
  9. LANSOPRAZOLE. [Concomitant]
     Active Substance: LANSOPRAZOLE
     Dates: start: 20140811
  10. IBUPROFEN. [Concomitant]
     Active Substance: IBUPROFEN
     Dates: start: 20140826
  11. COLECALCIFEROL [Concomitant]
     Active Substance: CHOLECALCIFEROL
     Dates: start: 20140408, end: 20140603

REACTIONS (5)
  - Swollen tongue [Recovered/Resolved]
  - Oropharyngeal pain [Recovered/Resolved]
  - Oral pain [Recovered/Resolved]
  - Hypersensitivity [Recovered/Resolved]
  - Mouth ulceration [Recovered/Resolved]

NARRATIVE: CASE EVENT DATE: 20140830
